FAERS Safety Report 4484637-X (Version None)
Quarter: 2004Q4

REPORT INFORMATION
  Report Type: 
  Country: None (occurrence: None)
  Receive Date: 20041022
  Receipt Date: 20041006
  Transmission Date: 20050328
  Serious: Yes (Death)
  Sender: FDA-Public Use
  Company Number: 2004AL000669

PATIENT
  Age: 19 Year
  Sex: 0

DRUGS (3)
  1. TRAZODONE HCL [Suspect]
     Dosage: PO
     Route: 048
  2. OXCARBAZEPINE [Suspect]
     Dosage: PO
     Route: 048
  3. AMIODARONE [Suspect]
     Dosage: PO
     Route: 048

REACTIONS (2)
  - COMPLETED SUICIDE [None]
  - MULTIPLE DRUG OVERDOSE [None]
